FAERS Safety Report 5837134-0 (Version None)
Quarter: 2008Q3

REPORT INFORMATION
  Report Type: 
  Country: None (occurrence: None)
  Receive Date: 20080731
  Receipt Date: 20080606
  Transmission Date: 20090109
  Serious: No
  Sender: FDA-Public Use
  Company Number: US200806001819

PATIENT
  Age: 72 Year
  Sex: Male

DRUGS (2)
  1. BYETTA [Suspect]
     Dosage: 5 UG, SUBCUTANEOUS
     Route: 058
     Dates: start: 20080601
  2. EXENATADIE (5 MCG PEN, DISPOSAL DEVICE (EXENATIDE PEN) (5 MCG)) PEN, D [Concomitant]

REACTIONS (1)
  - FEELING ABNORMAL [None]
